FAERS Safety Report 4334827-1 (Version None)
Quarter: 2004Q2

REPORT INFORMATION
  Report Type: 
  Country: None (occurrence: None)
  Receive Date: 20040405
  Receipt Date: 20040322
  Transmission Date: 20050107
  Serious: Yes (Disabling)
  Sender: FDA-Public Use
  Company Number: JP-JNJFOC-20040103369

PATIENT
  Age: 59 Year
  Sex: Female
  Weight: 33 kg

DRUGS (11)
  1. REMICADE [Suspect]
     Indication: RHEUMATOID ARTHRITIS
     Dosage: 3 MG/KG, 1 IN 1 AS NECESSARY, INTRAVENOUS DRIP
     Route: 041
     Dates: start: 20031217, end: 20031217
  2. REMICADE [Suspect]
     Indication: RHEUMATOID ARTHRITIS
     Dosage: 3 MG/KG, 1 IN 1 AS NECESSARY, INTRAVENOUS DRIP
     Route: 041
     Dates: start: 20031203
  3. RHEUMATREX [Concomitant]
  4. PREDONINE (TABLETS) PREDNISOLONE [Concomitant]
  5. VOLTAREN SR (DICLOFENAC SODIUM) CAPSULES [Concomitant]
  6. MOHRUS TAPE (KETOPROFEN) [Concomitant]
  7. D-ALPHA (ALL OTHER THERAPEUTIC PRODUCTS) CAPSULES [Concomitant]
  8. ZANTAC (RANITIDINE HYDROCHLORIDE) TABLETS [Concomitant]
  9. CERCIN (DIAZEPAM) TABLETS [Concomitant]
  10. RENDORMIN (ALL OTHER THERAPEUTIC PRODUCTS) TABLETS [Concomitant]
  11. .. [Concomitant]

REACTIONS (2)
  - ACETABULUM FRACTURE [None]
  - CEREBELLAR INFARCTION [None]
